FAERS Safety Report 19039045 (Version 1)
Quarter: 2021Q1

REPORT INFORMATION
  Report Type: Spontaneous
  Country: AR (occurrence: AR)
  Receive Date: 20210322
  Receipt Date: 20210322
  Transmission Date: 20210420
  Serious: Yes (Other)
  Sender: FDA-Public Use
  Company Number: AR-PFIZER INC-2021268205

PATIENT
  Age: 83 Year
  Sex: Male

DRUGS (1)
  1. SUTENT [Suspect]
     Active Substance: SUNITINIB MALATE
     Indication: METASTATIC RENAL CELL CARCINOMA
     Dosage: 37.5 MG, CYCLIC (DAILY, SCHEME 4/2)
     Dates: start: 20180702

REACTIONS (2)
  - Suicide attempt [Unknown]
  - Anger [Unknown]

NARRATIVE: CASE EVENT DATE: 202103
